FAERS Safety Report 23692881 (Version 2)
Quarter: 2024Q2

REPORT INFORMATION
  Report Type: Spontaneous
  Country: US (occurrence: US)
  Receive Date: 20240401
  Receipt Date: 20240619
  Transmission Date: 20240716
  Serious: No
  Sender: FDA-Public Use
  Company Number: US-SA-SAC20240326000266

PATIENT
  Age: 32 Year
  Sex: Male
  Weight: 108.4 kg

DRUGS (1)
  1. CERDELGA [Suspect]
     Active Substance: ELIGLUSTAT
     Indication: Gaucher^s disease
     Dosage: 84 MG, QD
     Route: 048
     Dates: start: 20231207

REACTIONS (1)
  - Weight increased [Not Recovered/Not Resolved]
